FAERS Safety Report 7413389-6 (Version None)
Quarter: 2011Q2

REPORT INFORMATION
  Report Type: 
  Country: None (occurrence: None)
  Receive Date: 20110413
  Receipt Date: 20110407
  Transmission Date: 20111010
  Serious: Yes (Hospitalization, Other)
  Sender: FDA-Public Use
  Company Number: JP-PFIZER INC-2011077533

PATIENT
  Age: 60 Year
  Sex: Male

DRUGS (3)
  1. ZOLOFT [Concomitant]
     Dosage: UNK
     Route: 048
     Dates: start: 20110304, end: 20110322
  2. RIVOTRIL [Concomitant]
     Dosage: UNK
     Route: 048
     Dates: start: 20110228, end: 20110322
  3. LYRICA [Suspect]
     Indication: PAIN
     Dosage: 75MG/DAY
     Route: 048
     Dates: start: 20110309, end: 20110322

REACTIONS (1)
  - HEPATIC FUNCTION ABNORMAL [None]
